FAERS Safety Report 9026500 (Version 1)
Quarter: 2013Q1

REPORT INFORMATION
  Report Type: Spontaneous
  Country: GB (occurrence: None)
  Receive Date: 20130107
  Receipt Date: 20130107
  Transmission Date: 20140127
  Serious: Yes (Other)
  Sender: FDA-Public Use
  Company Number: 2012-01924

PATIENT
  Age: 50 Year
  Sex: Female

DRUGS (1)
  1. LISINOPRIL (UNKNOWN) (LISINOPRIL) [Suspect]
     Indication: BLOOD PRESSURE
     Dosage: 1 IN 1 D

REACTIONS (4)
  - Anaemia [None]
  - Platelet count decreased [None]
  - White blood cell count decreased [None]
  - Biopsy bone marrow abnormal [None]
